FAERS Safety Report 24019078 (Version 1)
Quarter: 2024Q2

REPORT INFORMATION
  Report Type: Report from Study
  Country: US (occurrence: US)
  Receive Date: 20240627
  Receipt Date: 20240627
  Transmission Date: 20240716
  Serious: Yes (Other)
  Sender: FDA-Public Use
  Company Number: US-ABBVIE-5812842

PATIENT
  Age: 38 Year
  Sex: Female

DRUGS (1)
  1. ORILISSA [Suspect]
     Active Substance: ELAGOLIX SODIUM
     Indication: Product used for unknown indication
     Route: 048
     Dates: start: 20230822

REACTIONS (5)
  - Epidural injection [Not Recovered/Not Resolved]
  - Dysmenorrhoea [Unknown]
  - Heavy menstrual bleeding [Unknown]
  - Menstruation irregular [Unknown]
  - Secretion discharge [Unknown]

NARRATIVE: CASE EVENT DATE: 20240501
